FAERS Safety Report 20445488 (Version 1)
Quarter: 2022Q1

REPORT INFORMATION
  Report Type: Spontaneous
  Country: US (occurrence: None)
  Receive Date: 20220208
  Receipt Date: 20220208
  Transmission Date: 20220423
  Serious: Yes (Hospitalization)
  Sender: FDA-Public Use
  Company Number: None

PATIENT
  Age: 69 Year
  Sex: Female
  Weight: 102.15 kg

DRUGS (15)
  1. SOTROVIMAB [Suspect]
     Active Substance: SOTROVIMAB
     Indication: COVID-19
     Dosage: OTHER FREQUENCY : ONCE;?
     Route: 042
     Dates: start: 20220201, end: 20220201
  2. DEXAMETHASONE [Concomitant]
     Active Substance: DEXAMETHASONE
     Dates: start: 20220203, end: 20220207
  3. BENZONATATE [Concomitant]
     Active Substance: BENZONATATE
     Dates: start: 20220204, end: 20220207
  4. HYDROXYZINE [Concomitant]
     Active Substance: HYDROXYZINE HYDROCHLORIDE
     Dates: start: 20220203, end: 20220207
  5. REMDESIVIR [Concomitant]
     Active Substance: REMDESIVIR
     Dates: start: 20220203, end: 20220207
  6. DOXYCYCLINE [Concomitant]
     Active Substance: DOXYCYCLINE
     Dates: start: 20220203, end: 20220207
  7. PRAVASTATIN [Concomitant]
     Active Substance: PRAVASTATIN
     Dates: start: 20220203, end: 20220207
  8. LOSARTAN [Concomitant]
     Active Substance: LOSARTAN
     Dates: start: 20220204, end: 20220207
  9. TRAZODONE [Concomitant]
     Active Substance: TRAZODONE HYDROCHLORIDE
     Dates: start: 20191125
  10. VENLAFAXINE HYDROCHLORIDE [Concomitant]
     Active Substance: VENLAFAXINE HYDROCHLORIDE
     Dates: start: 20191125
  11. LEVOTHYROXINE [Concomitant]
     Active Substance: LEVOTHYROXINE
     Dates: start: 20191125
  12. ENOXAPARIN [Concomitant]
     Active Substance: ENOXAPARIN
     Dates: start: 20220203, end: 20220207
  13. ALBUTEROL [Concomitant]
     Active Substance: ALBUTEROL
     Dates: start: 20220203, end: 20220207
  14. GUAIFENESIN [Concomitant]
     Active Substance: GUAIFENESIN
     Dates: start: 20220203, end: 20220207
  15. PANTOPRAZOLE SODIUM [Concomitant]
     Active Substance: PANTOPRAZOLE SODIUM
     Dates: start: 20220204, end: 20220207

REACTIONS (8)
  - Malaise [None]
  - Decreased appetite [None]
  - Acute respiratory failure [None]
  - COVID-19 pneumonia [None]
  - Blood potassium decreased [None]
  - Troponin increased [None]
  - Lymphopenia [None]
  - Lung opacity [None]

NARRATIVE: CASE EVENT DATE: 20220203
